FAERS Safety Report 4897110-1 (Version None)
Quarter: 2006Q1

REPORT INFORMATION
  Report Type: 
  Country: None (occurrence: None)
  Receive Date: 20060127
  Receipt Date: 20060111
  Transmission Date: 20060701
  Serious: Yes (Hospitalization)
  Sender: FDA-Public Use
  Company Number: FR200601002304

PATIENT
  Age: 60 Year
  Sex: Male

DRUGS (1)
  1. CIALIS [Suspect]
     Dosage: 20 MG, 3/W, ORAL
     Route: 048
     Dates: start: 20050101

REACTIONS (2)
  - HEPATIC NECROSIS [None]
  - PROTHROMBIN LEVEL DECREASED [None]
